FAERS Safety Report 24843040 (Version 1)
Quarter: 2025Q1

REPORT INFORMATION
  Report Type: Report from Study
  Country: US (occurrence: US)
  Receive Date: 20250115
  Receipt Date: 20250115
  Transmission Date: 20250409
  Serious: No
  Sender: HRA PHARMA
  Company Number: US-ORG100014127-2024000004

PATIENT
  Age: 80 Year
  Sex: Male

DRUGS (13)
  1. LYSODREN [Suspect]
     Active Substance: MITOTANE
     Indication: Adrenal gland cancer
     Dosage: 1 TAB 4 TIMES DAILY
     Route: 048
     Dates: start: 20231212
  2. ACETAMINOPHN TAB 500MG [Concomitant]
     Indication: Product used for unknown indication
  3. ADMELOG SOLO INJ [Concomitant]
     Indication: Product used for unknown indication
  4. CLOTRIM/BETA CRE 1-0.05% [Concomitant]
     Indication: Product used for unknown indication
  5. COLESTIPOL TAB 1GM [Concomitant]
     Indication: Product used for unknown indication
  6. FERROUS SULF TAB 325MG [Concomitant]
     Indication: Product used for unknown indication
  7. GLARGIN YFGN SOL 100U/ML [Concomitant]
     Indication: Product used for unknown indication
  8. NOVOLOG [Concomitant]
     Active Substance: INSULIN ASPART
     Indication: Product used for unknown indication
  9. ONDANSETRON [Concomitant]
     Active Substance: ONDANSETRON
     Indication: Product used for unknown indication
  10. SIMVASTATIN [Concomitant]
     Active Substance: SIMVASTATIN
     Indication: Product used for unknown indication
  11. TAMSULOSIN [Concomitant]
     Active Substance: TAMSULOSIN
     Indication: Product used for unknown indication
  12. GABAPENTIN CAP 100MG [Concomitant]
     Indication: Product used for unknown indication
  13. OCUVITE TAB LUTEIN/ OCUVITE LUTE CAP [Concomitant]
     Indication: Product used for unknown indication

REACTIONS (2)
  - Blood glucose decreased [Not Recovered/Not Resolved]
  - Fatigue [Not Recovered/Not Resolved]
